FAERS Safety Report 8176449-0 (Version None)
Quarter: 2012Q1

REPORT INFORMATION
  Report Type: 
  Country: None (occurrence: None)
  Receive Date: 20120301
  Receipt Date: 20120223
  Transmission Date: 20120608
  Serious: Yes (Hospitalization)
  Sender: FDA-Public Use
  Company Number: US-BAYER-2011-032931

PATIENT
  Age: 35 Year
  Sex: Female
  Weight: 77.098 kg

DRUGS (7)
  1. KEPPRA [Concomitant]
     Dosage: 750 MG, QD
  2. NAMENDA [Concomitant]
     Dosage: 10 MG, UNK
     Dates: start: 20051227
  3. YASMIN [Suspect]
     Indication: CONTRACEPTION
     Dosage: UNK
     Route: 048
     Dates: start: 20051001, end: 20060201
  4. HYDROMORPHONE HCL [Concomitant]
     Dosage: 4 MG, UNK
     Dates: start: 20051227
  5. PHENERGAN [Concomitant]
     Dosage: 25 MG, UNK
  6. HYDROCHLOROTHIAZIDE [Concomitant]
     Dosage: 12.5 MG, UNK
     Dates: start: 20051228
  7. ZONEGRAN [Concomitant]
     Dosage: 100 G, TID

REACTIONS (4)
  - PAIN [None]
  - PULMONARY EMBOLISM [None]
  - DEEP VEIN THROMBOSIS [None]
  - PELVIC VENOUS THROMBOSIS [None]
